FAERS Safety Report 18735676 (Version 1)
Quarter: 2021Q1

REPORT INFORMATION
  Report Type: Spontaneous
  Country: US (occurrence: US)
  Receive Date: 20210113
  Receipt Date: 20210113
  Transmission Date: 20210419
  Serious: Yes (Hospitalization)
  Sender: FDA-Public Use
  Company Number: US-MYLANLABS-2021M1001481

PATIENT
  Age: 22 Year
  Sex: Female

DRUGS (1)
  1. ACICLOVIR [Suspect]
     Active Substance: ACYCLOVIR
     Indication: BEHCET^S SYNDROME
     Dosage: 10 MILLIGRAM/KILOGRAM, Q8H
     Route: 042

REACTIONS (3)
  - Nephropathy toxic [Unknown]
  - Acute kidney injury [Unknown]
  - Off label use [Unknown]
